FAERS Safety Report 5237175-0 (Version None)
Quarter: 2007Q1

REPORT INFORMATION
  Report Type: 
  Country: None (occurrence: None)
  Receive Date: 20061208
  Receipt Date: 20050331
  Transmission Date: 20070707
  Serious: Yes (Other)
  Sender: FDA-Public Use
  Company Number: 2005UW05016

PATIENT
  Age: 78 Year
  Sex: Male
  Weight: 97.522 kg

DRUGS (6)
  1. CRESTOR [Suspect]
     Indication: BLOOD CHOLESTEROL INCREASED
     Dosage: 10 MG PO
     Route: 048
     Dates: start: 20050301
  2. PRILOSEC [Concomitant]
  3. ACTOS [Concomitant]
  4. ZESTRIL [Concomitant]
  5. LOPRESSOR [Concomitant]
  6. ASPIRIN [Concomitant]

REACTIONS (7)
  - ASTHENIA [None]
  - CONFUSIONAL STATE [None]
  - HEADACHE [None]
  - NAUSEA [None]
  - PSYCHOMOTOR SKILLS IMPAIRED [None]
  - TREMOR [None]
  - VOMITING [None]
